FAERS Safety Report 6874701-X (Version None)
Quarter: 2010Q3

REPORT INFORMATION
  Report Type: 
  Country: None (occurrence: None)
  Receive Date: 20100722
  Receipt Date: 20100706
  Transmission Date: 20110219
  Serious: Yes (Other)
  Sender: FDA-Public Use
  Company Number: 2010P1000149

PATIENT
  Age: 63 Year
  Sex: Male

DRUGS (2)
  1. WARFARIN SODIUM [Suspect]
     Indication: DEEP VEIN THROMBOSIS
     Dosage: 59 MG; PER WEEK; PO
     Route: 048
  2. WARFARIN SODIUM [Suspect]
     Indication: DEEP VEIN THROMBOSIS
     Dosage: 59 MG; PER WEEK; PO
     Route: 048

REACTIONS (4)
  - BLUE TOE SYNDROME [None]
  - DEEP VEIN THROMBOSIS [None]
  - THERAPY CESSATION [None]
  - TRANSIENT ISCHAEMIC ATTACK [None]
